FAERS Safety Report 5850976-0 (Version None)
Quarter: 2008Q3

REPORT INFORMATION
  Report Type: 
  Country: None (occurrence: None)
  Receive Date: 20080820
  Receipt Date: 20080813
  Transmission Date: 20090109
  Serious: Yes (Hospitalization, Other)
  Sender: FDA-Public Use
  Company Number: US-ASTRAZENECA-2008UW05824

PATIENT
  Age: 501 Month
  Sex: Female
  Weight: 78 kg

DRUGS (11)
  1. SEROQUEL [Suspect]
     Indication: BIPOLAR DISORDER
     Route: 048
     Dates: start: 19990501, end: 19991001
  2. SEROQUEL [Suspect]
     Route: 048
     Dates: start: 19991101, end: 20010901
  3. SEROQUEL [Suspect]
     Route: 048
     Dates: start: 19991101, end: 20010901
  4. SEROQUEL [Suspect]
     Route: 048
     Dates: start: 20011001, end: 20060401
  5. SEROQUEL [Suspect]
     Route: 048
     Dates: start: 20011001, end: 20060401
  6. SEROQUEL [Suspect]
     Route: 048
     Dates: start: 20011001, end: 20060401
  7. ABILIFY [Concomitant]
     Dates: start: 20070301
  8. HALDOL [Concomitant]
  9. RISPERDAL [Concomitant]
     Dates: start: 20030801, end: 20070101
  10. THORAZINE [Concomitant]
  11. ZYPREXA [Concomitant]
     Dosage: 2.5MG, 5MG, 10MG
     Dates: start: 20020501, end: 20031201

REACTIONS (5)
  - ANXIETY [None]
  - DEPRESSION [None]
  - HEPATIC CIRRHOSIS [None]
  - OBESITY [None]
  - TYPE 2 DIABETES MELLITUS [None]
